FAERS Safety Report 8566224 (Version 2)
Quarter: 2012Q4

REPORT INFORMATION
  Report Type: 
  Country: US (occurrence: US)
  Receive Date: 20120517
  Receipt Date: 20121106
  Transmission Date: 20130627
  Serious: No
  Sender: FDA-Public Use
  Company Number: US-PFIZER INC-2012116870

PATIENT
  Age: 41 Year
  Sex: Female
  Weight: 60.3 kg

DRUGS (5)
  1. XALKORI [Suspect]
     Indication: MALIGNANT SOFT TISSUE NEOPLASM
     Dosage: 250 mg, 2x/day (1 capsule)
     Route: 048
  2. PERCOCET [Suspect]
     Dosage: UNK
  3. ENOXAPARIN [Concomitant]
     Dosage: 30/0.3 ml
  4. CALCIUM [Concomitant]
     Dosage: 500 tab
  5. ZOFRAN [Concomitant]
     Dosage: 4 mg, UNK

REACTIONS (4)
  - Off label use [Unknown]
  - Vomiting [Unknown]
  - Visual impairment [Recovered/Resolved]
  - Vision blurred [Recovered/Resolved]
